FAERS Safety Report 8450147-8 (Version None)
Quarter: 2012Q2

REPORT INFORMATION
  Report Type: 
  Country: None (occurrence: None)
  Receive Date: 20120613
  Receipt Date: 20120530
  Transmission Date: 20120825
  Serious: Yes (Hospitalization, Other)
  Sender: FDA-Public Use
  Company Number: AUR-APL-2011-05596

PATIENT
  Age: 80 Year
  Sex: Female

DRUGS (8)
  1. CIPROFLOXACIN [Suspect]
     Indication: URINARY TRACT INFECTION
     Dosage: 500 MG 9250 MG, 2 IN 1 D), ORAL
     Route: 048
     Dates: start: 20111018, end: 20111020
  2. COLCHICINE [Concomitant]
  3. TENORMIN [Concomitant]
  4. CHLORIDE [Concomitant]
  5. ULORIC [Concomitant]
  6. LASIX [Concomitant]
  7. PROTONIX [Concomitant]
  8. RAVATIO [Concomitant]

REACTIONS (7)
  - ASTHENIA [None]
  - DYSPHAGIA [None]
  - RESPIRATORY DISORDER [None]
  - HERPES ZOSTER [None]
  - PRODUCT QUALITY ISSUE [None]
  - INCORRECT STORAGE OF DRUG [None]
  - GAIT DISTURBANCE [None]
